FAERS Safety Report 11875324 (Version 1)
Quarter: 2015Q4

REPORT INFORMATION
  Report Type: Spontaneous
  Country: US (occurrence: US)
  Receive Date: 20151229
  Receipt Date: 20151229
  Transmission Date: 20160305
  Serious: Yes (Other)
  Sender: FDA-Public Use
  Company Number: US-CIPLA LTD.-2015US09923

PATIENT

DRUGS (2)
  1. LAMOTRIGINE. [Suspect]
     Active Substance: LAMOTRIGINE
     Indication: BIPOLAR I DISORDER
     Dosage: 100MG OR 150MG OR 200 MG OR 400MG PER DAY
     Route: 065
  2. ARIPIPRAZOLE. [Suspect]
     Active Substance: ARIPIPRAZOLE
     Indication: BIPOLAR I DISORDER
     Dosage: 10MG FOR 3 DAYS THEN 20MG FOR 3 DAYS THEN 30MG FRO 8 DAYS PER DAY
     Route: 065

REACTIONS (2)
  - Dyspepsia [Recovered/Resolved]
  - Dystonia [Recovered/Resolved]
